FAERS Safety Report 4628993-8 (Version None)
Quarter: 2005Q2

REPORT INFORMATION
  Report Type: 
  Country: None (occurrence: None)
  Receive Date: 20050405
  Receipt Date: 20050405
  Transmission Date: 20051028
  Serious: Yes (Hospitalization)
  Sender: FDA-Public Use
  Company Number: None

PATIENT
  Age: 54 Year
  Sex: Female
  Weight: 58.514 kg

DRUGS (4)
  1. FOSAMAX [Suspect]
     Indication: OSTEOPOROSIS
     Dosage: 1 PO Q WEEK
     Route: 048
     Dates: start: 20041219, end: 20050116
  2. SINUSITIS AMOXICILLIN [Concomitant]
  3. MUCINEX [Concomitant]
  4. CIPROFLOXACIN HCL [Concomitant]

REACTIONS (9)
  - ANAEMIA [None]
  - EYE PAIN [None]
  - FATIGUE [None]
  - MICROSCOPIC POLYANGIITIS [None]
  - MUSCULAR WEAKNESS [None]
  - PAIN [None]
  - PHARYNGOLARYNGEAL PAIN [None]
  - PNEUMONIA [None]
  - RED BLOOD CELL SEDIMENTATION RATE INCREASED [None]
